FAERS Safety Report 9996405 (Version 1)
Quarter: 2014Q1

REPORT INFORMATION
  Report Type: Spontaneous
  Country: US (occurrence: None)
  Receive Date: 20140310
  Receipt Date: 20140310
  Transmission Date: 20141002
  Serious: Yes (Other)
  Sender: FDA-Public Use
  Company Number: None

PATIENT
  Sex: 0

DRUGS (1)
  1. XYLOCAINE [Suspect]
     Indication: SKIN COSMETIC PROCEDURE
     Route: 058
     Dates: start: 20140219, end: 20140305

REACTIONS (2)
  - Product quality issue [None]
  - Drug effect decreased [None]
